FAERS Safety Report 6688003-8 (Version None)
Quarter: 2010Q2

REPORT INFORMATION
  Report Type: 
  Country: None (occurrence: None)
  Receive Date: 20100420
  Receipt Date: 20100409
  Transmission Date: 20101027
  Serious: Yes (Other)
  Sender: FDA-Public Use
  Company Number: US-BAYER-201021513GPV

PATIENT
  Age: 58 Year
  Sex: Male

DRUGS (4)
  1. FLUDARABINE [Suspect]
     Indication: STEM CELL TRANSPLANT
  2. MELPHALAN HYDROCHLORIDE [Suspect]
     Indication: STEM CELL TRANSPLANT
  3. CYCLOSPORINE [Concomitant]
     Indication: PROPHYLAXIS AGAINST GRAFT VERSUS HOST DISEASE
  4. MOFETIL MYCOPHENOLATE [Concomitant]
     Indication: PROPHYLAXIS AGAINST GRAFT VERSUS HOST DISEASE

REACTIONS (2)
  - GRAFT VERSUS HOST DISEASE [None]
  - HAEMOLYSIS [None]
